FAERS Safety Report 11129601 (Version 2)
Quarter: 2015Q2

REPORT INFORMATION
  Report Type: Spontaneous
  Country: SK (occurrence: SK)
  Receive Date: 20150521
  Receipt Date: 20150526
  Transmission Date: 20150821
  Serious: Yes (Other)
  Sender: FDA-Public Use
  Company Number: SK-BAYER-2015-228796

PATIENT
  Age: 25 Year
  Sex: Male

DRUGS (2)
  1. VITAMIN D [Concomitant]
     Active Substance: CHOLECALCIFEROL
     Dosage: 5 DROPS DAILY
  2. BETAFERON [Suspect]
     Active Substance: INTERFERON BETA-1B
     Indication: MULTIPLE SCLEROSIS
     Dosage: 250.0 ?G, QOD
     Route: 058
     Dates: start: 201406

REACTIONS (3)
  - Peripheral swelling [Recovering/Resolving]
  - Deep vein thrombosis [Recovering/Resolving]
  - Hypoaesthesia [Recovering/Resolving]

NARRATIVE: CASE EVENT DATE: 20150514
